FAERS Safety Report 21747129 (Version 1)
Quarter: 2022Q4

REPORT INFORMATION
  Report Type: Spontaneous
  Country: US (occurrence: US)
  Receive Date: 20221219
  Receipt Date: 20221219
  Transmission Date: 20230113
  Serious: Yes (Other)
  Sender: FDA-Public Use
  Company Number: US-BRISTOL-MYERS SQUIBB COMPANY-2022-152046

PATIENT
  Age: 75 Year
  Sex: Male

DRUGS (5)
  1. POMALYST [Suspect]
     Active Substance: POMALIDOMIDE
     Indication: Plasma cell myeloma
     Route: 048
  2. POMALYST [Suspect]
     Active Substance: POMALIDOMIDE
     Dosage: RESTARTED WITH DEXAMETHASONE
     Route: 048
     Dates: start: 202004
  3. DEXAMETHASONE [Suspect]
     Active Substance: DEXAMETHASONE
     Indication: Plasma cell myeloma
  4. DEXAMETHASONE [Suspect]
     Active Substance: DEXAMETHASONE
     Dosage: WAS TITRATED DOWN AND THEN DISCONTINUED
     Dates: start: 202004
  5. DEXAMETHASONE [Suspect]
     Active Substance: DEXAMETHASONE
     Dosage: RESUMED THERAPY AFTER RELAPSE
     Dates: start: 2022

REACTIONS (1)
  - Plasma cell myeloma refractory [Unknown]

NARRATIVE: CASE EVENT DATE: 20220808
